FAERS Safety Report 16129827 (Version 1)
Quarter: 2019Q1

REPORT INFORMATION
  Report Type: Spontaneous
  Country: FR (occurrence: FR)
  Receive Date: 20190328
  Receipt Date: 20190328
  Transmission Date: 20190418
  Serious: Yes (Other)
  Sender: FDA-Public Use
  Company Number: FR-PROVELL PHARMACEUTICALS-2064860

PATIENT
  Age: 57 Year
  Sex: Female

DRUGS (1)
  1. EUTHYROX [Suspect]
     Active Substance: LEVOTHYROXINE SODIUM
     Indication: HYPOTHYROIDISM
     Dates: start: 201705, end: 201711

REACTIONS (17)
  - Nausea [Recovering/Resolving]
  - Syncope [Recovering/Resolving]
  - Loss of personal independence in daily activities [Recovering/Resolving]
  - Anxiety [Recovering/Resolving]
  - Emotional distress [Recovering/Resolving]
  - Depression [Recovering/Resolving]
  - Decreased appetite [Recovering/Resolving]
  - Headache [Recovering/Resolving]
  - Insomnia [Recovering/Resolving]
  - Abdominal pain [Recovering/Resolving]
  - Alopecia [Recovering/Resolving]
  - Impaired driving ability [Recovering/Resolving]
  - Weight decreased [Recovering/Resolving]
  - General physical health deterioration [Recovering/Resolving]
  - Fear [Recovering/Resolving]
  - Nervousness [Recovering/Resolving]
  - Asthenia [Recovering/Resolving]

NARRATIVE: CASE EVENT DATE: 2017
